FAERS Safety Report 21451517 (Version 1)
Quarter: 2022Q4

REPORT INFORMATION
  Report Type: Report from Study
  Country: CA (occurrence: CA)
  Receive Date: 20221013
  Receipt Date: 20221013
  Transmission Date: 20230113
  Serious: Yes (Hospitalization)
  Sender: FDA-Public Use
  Company Number: CA-TEVA-2022-CA-2081713

PATIENT
  Age: 26 Year
  Sex: Female

DRUGS (8)
  1. HYDROCORTISONE [Suspect]
     Active Substance: HYDROCORTISONE
     Indication: Fungal infection
     Dosage: TOPICAL 1% HYDROCORTISONE POWDER IN CICLOPIROX CREAM FOR 2 WEEKS
     Route: 061
  2. HYDROCORTISONE [Suspect]
     Active Substance: HYDROCORTISONE
     Indication: Trichophytosis
  3. TERBINAFINE [Suspect]
     Active Substance: TERBINAFINE
     Indication: Fungal infection
     Dosage: USED FOR SEVERAL WEEKS
     Route: 065
  4. TERBINAFINE [Suspect]
     Active Substance: TERBINAFINE
     Indication: Trichophytosis
  5. CICLOPIROX [Suspect]
     Active Substance: CICLOPIROX
     Indication: Fungal infection
     Dosage: TOPICAL 1% HYDROCORTISONE POWDER IN CICLOPIROX CREAM FOR 2 WEEKS
     Route: 061
  6. CICLOPIROX [Suspect]
     Active Substance: CICLOPIROX
     Indication: Trichophytosis
  7. ITRACONAZOLE [Suspect]
     Active Substance: ITRACONAZOLE
     Indication: Fungal infection
     Dosage: 100 MILLIGRAM DAILY; SHE RECEIVED ORAL ITRACONAZOLE 100MG/DAY FOR 2 WEEKS. HOWEVER, 2 WEEKS AFTER TR
     Route: 048
  8. ITRACONAZOLE [Suspect]
     Active Substance: ITRACONAZOLE
     Indication: Trichophytosis

REACTIONS (2)
  - Fungal infection [Unknown]
  - Drug ineffective [Unknown]
